FAERS Safety Report 16186243 (Version 1)
Quarter: 2019Q2

REPORT INFORMATION
  Report Type: Spontaneous
  Country: US (occurrence: US)
  Receive Date: 20190308
  Receipt Date: 20190308
  Transmission Date: 20190711
  Serious: Yes (Disabling, Other)
  Sender: FDA-Public Use
  Company Number: None

PATIENT
  Age: 74 Year
  Sex: Female
  Weight: 99.79 kg

DRUGS (3)
  1. VITAMIN D3 [Concomitant]
     Active Substance: CHOLECALCIFEROL
  2. VITAMIN C [Concomitant]
     Active Substance: ASCORBIC ACID
  3. FEMARA [Suspect]
     Active Substance: LETROZOLE
     Indication: BREAST CANCER
     Route: 048
     Dates: start: 201703, end: 201901

REACTIONS (8)
  - Myalgia [None]
  - Gait disturbance [None]
  - Musculoskeletal stiffness [None]
  - Peripheral swelling [None]
  - Dysgraphia [None]
  - Bone pain [None]
  - Arthralgia [None]
  - Musculoskeletal disorder [None]
